FAERS Safety Report 6988002-2 (Version None)
Quarter: 2010Q3

REPORT INFORMATION
  Report Type: 
  Country: None (occurrence: None)
  Receive Date: 20100830
  Receipt Date: 20090622
  Transmission Date: 20110219
  Serious: No
  Sender: FDA-Public Use
  Company Number: 2009-00151

PATIENT
  Age: 69 Year
  Sex: Female
  Weight: 86.1834 kg

DRUGS (3)
  1. ZICAM EXTREME CONGESTION RELIEF [Suspect]
     Dosage: BID X 3 DAYS
     Dates: start: 20090201
  2. ALL ZICAM PRODUCTS [Suspect]
     Dosage: 2X ONLY
     Dates: start: 20090201
  3. LIPITOR [Concomitant]

REACTIONS (2)
  - AGEUSIA [None]
  - ANOSMIA [None]
